FAERS Safety Report 8503233 (Version 2)
Quarter: 2013Q1

REPORT INFORMATION
  Report Type: Spontaneous
  Country: GB (occurrence: GB)
  Receive Date: 20120411
  Receipt Date: 20130322
  Transmission Date: 20140127
  Serious: Yes (Other)
  Sender: FDA-Public Use
  Company Number: GB-PFIZER INC-2012080207

PATIENT
  Sex: Male

DRUGS (7)
  1. GABAPENTIN [Suspect]
     Dosage: 100 MG, 10 DOSAGE FORMS
  2. ATORVASTATIN [Suspect]
     Dosage: 10 X 10MG
  3. FLUOXETINE HCL [Suspect]
     Dosage: 20 MG, 10 DOSAGE FORMS
  4. PRADAXA [Suspect]
     Indication: CEREBROVASCULAR ACCIDENT PROPHYLAXIS
     Dosage: 110 MG, 10 DOSAGE FORMS
  5. PRADAXA [Suspect]
     Indication: ATRIAL FIBRILLATION
  6. DIAZEPAM [Suspect]
     Dosage: 5 MG, 10 DOSAGE FORMS
  7. ALCOHOL [Suspect]

REACTIONS (4)
  - Intentional overdose [Recovered/Resolved]
  - Suicidal behaviour [Recovered/Resolved]
  - Suicidal ideation [Recovered/Resolved]
  - Vomiting [Recovered/Resolved]
